FAERS Safety Report 11177208 (Version 1)
Quarter: 2015Q2

REPORT INFORMATION
  Report Type: Spontaneous
  Country: US (occurrence: US)
  Receive Date: 20150610
  Receipt Date: 20150610
  Transmission Date: 20150821
  Serious: Yes (Disabling)
  Sender: FDA-Public Use
  Company Number: US-DRREDDYS-USA/USA/15/0048478

PATIENT
  Age: 34 Year
  Sex: Male
  Weight: 131 kg

DRUGS (1)
  1. SILDENAFIL. [Suspect]
     Active Substance: SILDENAFIL
     Indication: CARDIAC FAILURE CONGESTIVE
     Route: 065
     Dates: start: 201407

REACTIONS (1)
  - Physical disability [Not Recovered/Not Resolved]

NARRATIVE: CASE EVENT DATE: 20140806
